FAERS Safety Report 10144287 (Version 1)
Quarter: 2014Q2

REPORT INFORMATION
  Report Type: Spontaneous
  Country: DE (occurrence: DE)
  Receive Date: 20140430
  Receipt Date: 20140430
  Transmission Date: 20141212
  Serious: Yes (Hospitalization)
  Sender: FDA-Public Use
  Company Number: DE-WATSON-2014-08512

PATIENT
  Age: 16 Year
  Sex: Female
  Weight: 58 kg

DRUGS (2)
  1. CITALOPRAM (UNKNOWN) [Suspect]
     Indication: DEPRESSION
     Dosage: 20 MG, DAILY
     Route: 065
  2. CITALOPRAM [Concomitant]
     Indication: DEPRESSION
     Dosage: 10 MG, DAILY
     Route: 065

REACTIONS (3)
  - Tachycardia [Recovering/Resolving]
  - Tremor [Recovering/Resolving]
  - Vomiting [Recovering/Resolving]
